FAERS Safety Report 10595068 (Version 1)
Quarter: 2014Q4

REPORT INFORMATION
  Report Type: Spontaneous
  Country: AU (occurrence: None)
  Receive Date: 20141107
  Receipt Date: 20141107
  Transmission Date: 20150529
  Serious: Yes (Hospitalization)
  Sender: FDA-Public Use
  Company Number: GAM-371-14-AU

PATIENT
  Age: 20 Year
  Sex: Female

DRUGS (10)
  1. METFORMIN HYDROCHLORIDE. [Concomitant]
     Active Substance: METFORMIN HYDROCHLORIDE
  2. OCTAGAM IMMUNE GLOBULIN (HUMAN) [Suspect]
     Active Substance: HUMAN IMMUNOGLOBULIN G
     Indication: BK VIRUS INFECTION
     Route: 042
     Dates: start: 20130706, end: 20130706
  3. CHOLECALCIFEROL [Concomitant]
     Active Substance: CHOLECALCIFEROL
  4. CYCLOSPORINE. [Concomitant]
     Active Substance: CYCLOSPORINE
  5. GLICLAZIDE [Concomitant]
     Active Substance: GLICLAZIDE
  6. PANTOPRAZOLE [Concomitant]
     Active Substance: PANTOPRAZOLE SODIUM
  7. MYCOPHENOLATE MOFETIL. [Concomitant]
     Active Substance: MYCOPHENOLATE MOFETIL
  8. INDAPAMIDE HEMIHYDRATE AND PERINDOPRIL [Concomitant]
  9. PREDNISOLONE. [Concomitant]
     Active Substance: PREDNISOLONE
  10. SULPHAMETHOXAZOLE AND TRIMETHOPRIM [Concomitant]

REACTIONS (2)
  - Pulmonary embolism [None]
  - Dyspnoea [None]

NARRATIVE: CASE EVENT DATE: 20130618
